FAERS Safety Report 4436175-8 (Version None)
Quarter: 2004Q3

REPORT INFORMATION
  Report Type: 
  Country: None (occurrence: None)
  Receive Date: 20040830
  Receipt Date: 20040504
  Transmission Date: 20050211
  Serious: No
  Sender: FDA-Public Use
  Company Number: US-BRISTOL-MYERS SQUIBB COMPANY-12579538

PATIENT
  Age: 55 Year
  Sex: Male
  Weight: 115 kg

DRUGS (12)
  1. ERBITUX [Suspect]
     Indication: COLORECTAL CANCER
     Dosage: 1ST INFUSION 400 MG/M2, SECOND INFUSION 250 MG/M2 ON 03-MAY-2004
     Route: 042
  2. IRINOTECAN [Concomitant]
  3. BENADRYL [Concomitant]
     Indication: PREMEDICATION
  4. DEXAMETHASONE [Concomitant]
     Indication: PREMEDICATION
  5. TAGAMET [Concomitant]
     Indication: PREMEDICATION
  6. COMPAZINE [Concomitant]
  7. GLUCOPHAGE [Concomitant]
  8. LOVASTATIN [Concomitant]
  9. LISINOPRIL [Concomitant]
  10. TERAZOSIN HCL [Concomitant]
  11. LORAZEPAM [Concomitant]
  12. VICODIN [Concomitant]

REACTIONS (2)
  - DERMATITIS ACNEIFORM [None]
  - STOMATITIS [None]
